FAERS Safety Report 14309643 (Version 2)
Quarter: 2017Q4

REPORT INFORMATION
  Report Type: Spontaneous
  Country: CN (occurrence: CN)
  Receive Date: 20171220
  Receipt Date: 20171229
  Transmission Date: 20180321
  Serious: Yes (Other)
  Sender: FDA-Public Use
  Company Number: CN-PFIZER INC-2017533099

PATIENT
  Age: 80 Year
  Sex: Male

DRUGS (1)
  1. CORDARONE [Suspect]
     Active Substance: AMIODARONE HYDROCHLORIDE
     Indication: ARRHYTHMIA
     Dosage: 150 MG, 1X/DAY
     Route: 048
     Dates: start: 20170911, end: 20170911

REACTIONS (1)
  - Phlebitis infective [Recovered/Resolved]

NARRATIVE: CASE EVENT DATE: 20170911
